FAERS Safety Report 6110401 (Version 2)
Quarter: 2019Q1

REPORT INFORMATION
  Report Type: Spontaneous
  Country: FR (occurrence: FR)
  Receive Date: 20060818
  Receipt Date: 20190329
  Transmission Date: 20190418
  Serious: Yes (Death)
  Sender: FDA-Public Use
  Company Number: FR-SANOFI-SYNTHELABO-A02200602028

PATIENT
  Age: 61 Year
  Sex: Male

DRUGS (9)
  1. LORMETAZEPAM [Suspect]
     Active Substance: LORMETAZEPAM
     Dosage: 1 DF, QD
     Route: 048
     Dates: start: 20060603
  2. RISPERDAL CONSTA [Suspect]
     Active Substance: RISPERIDONE
     Dosage: 2 MG,QD
     Route: 048
     Dates: start: 20060603, end: 20060618
  3. RISPERDAL CONSTA [Suspect]
     Active Substance: RISPERIDONE
     Dosage: 1 MG,QD
     Route: 048
     Dates: start: 20060619
  4. RISPERDAL CONSTA [Suspect]
     Active Substance: RISPERIDONE
     Dosage: 1 DF, QOD
     Route: 030
     Dates: start: 20060510
  5. GINKGO BILOBA [Suspect]
     Active Substance: GINKGO
     Dosage: 3 DF, QD
     Route: 048
     Dates: start: 20060426
  6. RISPERDAL CONSTA [Suspect]
     Active Substance: RISPERIDONE
     Indication: BIPOLAR I DISORDER
     Dosage: 4 MG,QD
     Route: 048
     Dates: start: 20060419, end: 20060602
  7. PIASCLEDINE [GLYCINE MAX SEED OIL;PERSEA AMERICANA OIL] [Concomitant]
     Active Substance: AVOCADO OIL\SOYBEAN OIL
     Dosage: UNK
     Dates: start: 20060426
  8. STILNOX [Suspect]
     Active Substance: ZOLPIDEM TARTRATE
     Indication: PRODUCT USED FOR UNKNOWN INDICATION
     Dosage: UNK UNK,UNK
     Route: 048
     Dates: start: 20060603
  9. CLONAZEPAM. [Suspect]
     Active Substance: CLONAZEPAM
     Dosage: 1 DF, QD
     Route: 048
     Dates: start: 20060419

REACTIONS (1)
  - Cardiac arrest [Fatal]

NARRATIVE: CASE EVENT DATE: 20060704
